FAERS Safety Report 24404554 (Version 1)
Quarter: 2024Q4

REPORT INFORMATION
  Report Type: Spontaneous
  Country: JP (occurrence: JP)
  Receive Date: 20241007
  Receipt Date: 20241007
  Transmission Date: 20250115
  Serious: No
  Sender: ROCHE
  Company Number: JP-CHUGAI-2024000987

PATIENT
  Age: 75 Year
  Sex: Female

DRUGS (1)
  1. GAZYVA [Suspect]
     Active Substance: OBINUTUZUMAB
     Indication: Product used for unknown indication
     Dosage: ONCE/2MONTHS
     Route: 065

REACTIONS (1)
  - Cystitis [Recovered/Resolved]

NARRATIVE: CASE EVENT DATE: 20231101
